FAERS Safety Report 11119157 (Version 1)
Quarter: 2015Q2

REPORT INFORMATION
  Report Type: Spontaneous
  Country: PE (occurrence: PE)
  Receive Date: 20150518
  Receipt Date: 20150518
  Transmission Date: 20150821
  Serious: Yes (Death, Other)
  Sender: FDA-Public Use
  Company Number: PE-SA-2015SA064367

PATIENT
  Age: 84 Year
  Sex: Female

DRUGS (1)
  1. COAPROVEL [Suspect]
     Active Substance: HYDROCHLOROTHIAZIDE\IRBESARTAN
     Indication: HYPERTENSION
     Route: 048
     Dates: start: 2010

REACTIONS (8)
  - Intestinal obstruction [Unknown]
  - Pneumonia [Unknown]
  - Dehydration [Unknown]
  - Infrequent bowel movements [Unknown]
  - Gastric cancer [Fatal]
  - Decreased appetite [Unknown]
  - Dysuria [Unknown]
  - Pain [Unknown]

NARRATIVE: CASE EVENT DATE: 20141110
